FAERS Safety Report 7666212 (Version 2)
Quarter: 2013Q3

REPORT INFORMATION
  Report Type: Spontaneous
  Country: US (occurrence: US)
  Receive Date: 20101112
  Receipt Date: 20130904
  Transmission Date: 20140515
  Serious: Yes (Hospitalization)
  Sender: FDA-Public Use
  Company Number: US-US-EMD SERONO, INC.-7007148

PATIENT
  Sex: Female
  Weight: 69 kg

DRUGS (4)
  1. REBIF [Suspect]
     Indication: MULTIPLE SCLEROSIS
     Route: 058
     Dates: start: 20100505, end: 201006
  2. REBIF [Suspect]
     Route: 058
     Dates: start: 201006
  3. TEGRETOL [Concomitant]
     Indication: CONVULSION
     Dates: start: 201001
  4. BENTYL [Concomitant]
     Indication: IRRITABLE BOWEL SYNDROME

REACTIONS (5)
  - Colitis [Recovering/Resolving]
  - Irritable bowel syndrome [Recovered/Resolved]
  - Weight decreased [Unknown]
  - Dizziness [Unknown]
  - Injection site pain [Not Recovered/Not Resolved]
